FAERS Safety Report 21039822 (Version 1)
Quarter: 2022Q3

REPORT INFORMATION
  Report Type: Spontaneous
  Country: CN (occurrence: CN)
  Receive Date: 20220704
  Receipt Date: 20220704
  Transmission Date: 20221027
  Serious: Yes (Hospitalization, Other)
  Sender: FDA-Public Use
  Company Number: CN-PFIZER INC-202200918633

PATIENT
  Sex: Male

DRUGS (3)
  1. ATORVASTATIN CALCIUM [Suspect]
     Active Substance: ATORVASTATIN CALCIUM
     Dosage: 10 MG, QN
     Route: 048
  2. METOPROLOL [Suspect]
     Active Substance: METOPROLOL
     Dosage: 47.5 MG, 1X/DAY
     Route: 048
  3. LOSARTAN POTASSIUM [Suspect]
     Active Substance: LOSARTAN POTASSIUM
     Dosage: 50 MG, 1X/DAY
     Route: 048

REACTIONS (2)
  - Appendicitis [Recovering/Resolving]
  - Hypertension [Unknown]
